FAERS Safety Report 5734291-1 (Version None)
Quarter: 2008Q2

REPORT INFORMATION
  Report Type: 
  Country: None (occurrence: None)
  Receive Date: 20080512
  Receipt Date: 20080505
  Transmission Date: 20081010
  Serious: Yes (Other)
  Sender: FDA-Public Use
  Company Number: HQWYE107402MAY06

PATIENT
  Sex: Female

DRUGS (5)
  1. PREMARIN [Suspect]
  2. CONJUGATED ESTROGENS [Suspect]
  3. PREMPRO/PREMPHASE [Concomitant]
  4. PROGESTERONE [Suspect]
  5. MEDROXYPROGESTERONE ACETATE [Suspect]

REACTIONS (1)
  - BREAST CANCER METASTATIC [None]
